FAERS Safety Report 8966592 (Version 1)
Quarter: 2012Q4

REPORT INFORMATION
  Report Type: 
  Country: US (occurrence: US)
  Receive Date: 20121217
  Receipt Date: 20121217
  Transmission Date: 20130627
  Serious: No
  Sender: FDA-Public Use
  Company Number: US-PFIZER INC-2012313224

PATIENT
  Age: 21 Year
  Sex: Female
  Weight: 59.9 kg

DRUGS (10)
  1. LEVOXYL [Suspect]
     Indication: THYROID HORMONE REPLACEMENT THERAPY
     Dosage: 100 ug, daily
     Dates: start: 200608
  2. LEVOXYL [Suspect]
     Dosage: 88 ug, daily
     Dates: start: 200610
  3. LEVOXYL [Suspect]
     Dosage: 75 ug, daily
  4. LEVOXYL [Suspect]
     Dosage: 50 ug, daily
     Dates: start: 200901, end: 2009
  5. LEVOXYL [Suspect]
     Dosage: 25 ug, daily
     Dates: start: 200904, end: 2009
  6. LEVOXYL [Suspect]
     Dosage: 50 ug, daily
     Dates: start: 200905, end: 2009
  7. LEVOXYL [Suspect]
     Dosage: 62.5 ug, daily
     Dates: start: 200907
  8. LEVOXYL [Suspect]
     Dosage: 37.5 ug, daily
     Dates: start: 201006, end: 2010
  9. LEVOXYL [Suspect]
     Dosage: 37.5 ug, 5 days a week
     Dates: start: 201010
  10. LEVOXYL [Suspect]
     Dosage: UNK

REACTIONS (4)
  - Blood thyroid stimulating hormone decreased [Not Recovered/Not Resolved]
  - Fatigue [Not Recovered/Not Resolved]
  - Muscular weakness [Not Recovered/Not Resolved]
  - Activities of daily living impaired [Not Recovered/Not Resolved]
